FAERS Safety Report 7571228-7 (Version None)
Quarter: 2011Q2

REPORT INFORMATION
  Report Type: 
  Country: None (occurrence: None)
  Receive Date: 20110624
  Receipt Date: 20110404
  Transmission Date: 20111010
  Serious: Yes (Hospitalization)
  Sender: FDA-Public Use
  Company Number: A0926465A

PATIENT
  Sex: Female

DRUGS (6)
  1. TRAMADOL HCL [Concomitant]
  2. HYDROCHLOROTHIAZIDE [Concomitant]
  3. XELODA [Suspect]
     Route: 065
  4. TYKERB [Suspect]
     Dosage: 1250MG PER DAY
     Route: 048
     Dates: start: 20110216
  5. FRAGMIN [Concomitant]
  6. IMOVANE [Concomitant]

REACTIONS (9)
  - PNEUMONIA [None]
  - COUGH [None]
  - FATIGUE [None]
  - RASH PAPULAR [None]
  - LUNG DISORDER [None]
  - RADIATION SKIN INJURY [None]
  - SKIN DISCOLOURATION [None]
  - RASH [None]
  - RASH PRURITIC [None]
